FAERS Safety Report 17485419 (Version 1)
Quarter: 2020Q1

REPORT INFORMATION
  Report Type: Spontaneous
  Country: DE (occurrence: DE)
  Receive Date: 20200302
  Receipt Date: 20200302
  Transmission Date: 20200409
  Serious: Yes (Hospitalization)
  Sender: FDA-Public Use
  Company Number: DE-009507513-2005-04-2030

PATIENT
  Age: 23 Year
  Sex: Male

DRUGS (2)
  1. PEGINTRON [Suspect]
     Active Substance: PEGINTERFERON ALFA-2B
     Indication: CHRONIC HEPATITIS C
     Dosage: DOSE: UNKNOWN, DURATION: 3.5 MONTH(S)
     Route: 058
  2. REBETOL [Suspect]
     Active Substance: RIBAVIRIN
     Indication: CHRONIC HEPATITIS C
     Dosage: DOSE: UNKNOWN, DURATION: 3.5 MONTH(S)
     Route: 048

REACTIONS (2)
  - Influenza like illness [Recovered/Resolved]
  - Retinal haemorrhage [Recovered/Resolved]
